FAERS Safety Report 21269231 (Version 1)
Quarter: 2022Q3

REPORT INFORMATION
  Report Type: Spontaneous
  Country: US (occurrence: US)
  Receive Date: 20220830
  Receipt Date: 20220830
  Transmission Date: 20221027
  Serious: No
  Sender: FDA-Public Use
  Company Number: US-BRISTOL-MYERS SQUIBB COMPANY-2022-097495

PATIENT
  Age: 80 Year
  Sex: Male

DRUGS (1)
  1. REVLIMID [Suspect]
     Active Substance: LENALIDOMIDE
     Indication: Plasma cell myeloma
     Dosage: PATIENT DROPPING FROM 20 MG TO 15 MG BUT 15MG HAS NOT BEEN DISPENSED YET
     Route: 048
     Dates: start: 20210111

REACTIONS (1)
  - White blood cell count decreased [Unknown]
